FAERS Safety Report 8773307 (Version 2)
Quarter: 2012Q4

REPORT INFORMATION
  Report Type: 
  Country: US (occurrence: US)
  Receive Date: 20120907
  Receipt Date: 20120917
  Transmission Date: 20130627
  Serious: Yes (Life-Threatening, Hospitalization, Disabling)
  Sender: FDA-Public Use
  Company Number: US-BAYER-2012-092251

PATIENT
  Age: 37 Year
  Sex: Female

DRUGS (12)
  1. YAZ [Suspect]
     Dosage: UNK
  2. YASMIN [Suspect]
     Dosage: UNK
  3. OCELLA [Suspect]
     Dosage: UNK
  4. BEYAZ [Suspect]
  5. DILAUDID [Concomitant]
     Dosage: 2 mg, PRN,every 6 hours.
     Route: 048
  6. VITAMIN D [Concomitant]
     Dosage: 1 Cap/once a week
     Route: 048
  7. LEVOTHYROXINE [Concomitant]
     Dosage: UNK UNK, QD
     Dates: start: 20110407, end: 20110828
  8. PROZAC [Concomitant]
     Dosage: 40 mg, QD
     Route: 048
     Dates: start: 20110201, end: 20110829
  9. SULFAMETHOXAZOLE/TRIMETHOPRIM [Concomitant]
     Dosage: double strength
     Route: 048
     Dates: start: 20110829
  10. VOLTAREN [Concomitant]
     Dosage: 75 mg, BID,daily with food.
     Route: 048
     Dates: start: 20110829
  11. TRAMADOL HYDROCHLORIDE [Concomitant]
     Dosage: 50 mg, UNK
     Dates: start: 20110829
  12. HYDROCODONE/ACETAMINOPHEN [Concomitant]
     Dosage: 5-500 mg
     Dates: start: 20110902

REACTIONS (9)
  - Deep vein thrombosis [None]
  - Pulmonary embolism [None]
  - Injury [None]
  - Pain [None]
  - General physical health deterioration [None]
  - Anxiety [None]
  - Anhedonia [None]
  - Emotional distress [None]
  - Pain [None]
